FAERS Safety Report 20643450 (Version 1)
Quarter: 2022Q1

REPORT INFORMATION
  Report Type: Spontaneous
  Country: US (occurrence: None)
  Receive Date: 20220325
  Receipt Date: 20220325
  Transmission Date: 20220424
  Serious: Yes (Hospitalization)
  Sender: FDA-Public Use
  Company Number: None

PATIENT
  Sex: Male

DRUGS (2)
  1. DEFERASIROX [Suspect]
     Active Substance: DEFERASIROX
     Indication: Haemochromatosis
     Dosage: TAKE 1 PACKET (180 MG) MY MOUTH AS DIRECTED ONCE DAILY MONDAY-FRIDAY AND TAKE 2 PACKETS (360 MG) BY
     Route: 048
     Dates: start: 20201017
  2. DEFERASIROX [Suspect]
     Active Substance: DEFERASIROX
     Dosage: OTHER FREQUENCY : SATURDAY, SUNDAY;?
     Route: 048
     Dates: start: 20201017

REACTIONS (2)
  - Pyrexia [None]
  - Condition aggravated [None]
